FAERS Safety Report 19513736 (Version 2)
Quarter: 2021Q3

REPORT INFORMATION
  Report Type: Spontaneous
  Country: US (occurrence: US)
  Receive Date: 20210709
  Receipt Date: 20210826
  Transmission Date: 20211014
  Serious: No
  Sender: FDA-Public Use
  Company Number: US-JNJFOC-20210706349

PATIENT
  Age: 6 Decade
  Sex: Male

DRUGS (1)
  1. ELMIRON [Suspect]
     Active Substance: PENTOSAN POLYSULFATE SODIUM
     Indication: CYSTITIS INTERSTITIAL
     Route: 048
     Dates: start: 2009, end: 2019

REACTIONS (2)
  - Delayed dark adaptation [Unknown]
  - Visual impairment [Unknown]

NARRATIVE: CASE EVENT DATE: 2012
